FAERS Safety Report 5295034-1 (Version None)
Quarter: 2007Q1

REPORT INFORMATION
  Report Type: 
  Country: None (occurrence: None)
  Receive Date: 20070116
  Receipt Date: 20061005
  Transmission Date: 20070707
  Serious: Yes (Other)
  Sender: FDA-Public Use
  Company Number: HQWYE730206OCT06

PATIENT
  Age: 59 Year
  Sex: Female
  Weight: 78.54 kg

DRUGS (3)
  1. PREMPRO [Suspect]
     Indication: MENOPAUSAL SYMPTOMS
     Dosage: UNK; ORAL
     Route: 048
  2. SYNTHROID [Concomitant]
  3. ZANTAC [Concomitant]

REACTIONS (1)
  - BREAST CANCER STAGE I [None]
